FAERS Safety Report 12320425 (Version 1)
Quarter: 2016Q2

REPORT INFORMATION
  Report Type: Spontaneous
  Country: BR (occurrence: BR)
  Receive Date: 20160429
  Receipt Date: 20160429
  Transmission Date: 20160815
  Serious: Yes (Other)
  Sender: FDA-Public Use
  Company Number: BR-ABBVIE-16P-020-1609463-00

PATIENT
  Age: 50 Year
  Sex: Female
  Weight: 71 kg

DRUGS (9)
  1. OSTEOTRAT [Concomitant]
     Indication: MINERAL SUPPLEMENTATION
  2. ADDERA D3 [Concomitant]
     Active Substance: CHOLECALCIFEROL
     Indication: VITAMIN SUPPLEMENTATION
  3. RABIES VACCINE [Concomitant]
     Active Substance: RABIES VACCINE
     Indication: PROPHYLAXIS
  4. IODINE. [Interacting]
     Active Substance: IODINE
     Indication: PRODUCT USED FOR UNKNOWN INDICATION
     Route: 065
     Dates: start: 20160404, end: 20160404
  5. TETANUS TOXOID ADSORBED [Concomitant]
     Active Substance: CLOSTRIDIUM TETANI TOXOID ANTIGEN (FORMALDEHYDE INACTIVATED)
     Indication: PROPHYLAXIS
  6. SYNTHROID [Suspect]
     Active Substance: LEVOTHYROXINE SODIUM
     Indication: HYPOTHYROIDISM
     Route: 048
     Dates: start: 2015, end: 20160408
  7. ADDERA D3 [Concomitant]
     Active Substance: CHOLECALCIFEROL
     Indication: MINERAL SUPPLEMENTATION
     Dosage: 7000 IU EVERY WEDNESDAY
     Route: 048
     Dates: start: 20160313
  8. OSTEOTRAT [Concomitant]
     Indication: BONE LOSS
     Dosage: 1 TABLET EVERY SATURDAY
     Route: 065
     Dates: start: 20160309
  9. MAGNESIUM [Concomitant]
     Active Substance: MAGNESIUM
     Indication: PRODUCT USE ISSUE
     Dosage: 6 TEASPOON DAILY; 3 TEASPOON IN THE MORNING AND IN THE AFTERNOON
     Route: 048
     Dates: start: 201604

REACTIONS (10)
  - Viral infection [Recovered/Resolved]
  - Oropharyngeal discomfort [Recovering/Resolving]
  - Musculoskeletal pain [Recovered/Resolved]
  - Vision blurred [Unknown]
  - Fall [Unknown]
  - Myositis [Unknown]
  - Therapy cessation [Unknown]
  - Breast cyst [Unknown]
  - Tachycardia [Recovering/Resolving]
  - Pain in extremity [Not Recovered/Not Resolved]

NARRATIVE: CASE EVENT DATE: 2015
